FAERS Safety Report 9644930 (Version 3)
Quarter: 2013Q4

REPORT INFORMATION
  Report Type: Spontaneous
  Country: US (occurrence: US)
  Receive Date: 20131025
  Receipt Date: 20131223
  Transmission Date: 20140711
  Serious: No
  Sender: FDA-Public Use
  Company Number: US-PFIZER INC-2013303618

PATIENT
  Age: 64 Year
  Sex: Female

DRUGS (2)
  1. PREMPRO [Suspect]
     Dosage: ESTROGENS CONJUGATED 0.625 MG/ MEDROXYPROGESTERONE ACETATE 2.5 MG, 1X/DAY
     Route: 048
  2. NORVASC [Concomitant]
     Dosage: 5 MG, 1X/DAY
     Route: 048

REACTIONS (1)
  - Malaise [Unknown]
